FAERS Safety Report 4355264-X (Version None)
Quarter: 2004Q2

REPORT INFORMATION
  Report Type: 
  Country: None (occurrence: None)
  Receive Date: 20040505
  Receipt Date: 20040422
  Transmission Date: 20050107
  Serious: Yes (Death)
  Sender: FDA-Public Use
  Company Number: 206120

PATIENT
  Age: 55 Year
  Sex: Female
  Weight: 61 kg

DRUGS (1)
  1. HERCEPTIN [Suspect]
     Indication: BREAST CANCER
     Dosage: 240 MG , SINGLE, INTRAVENOUS
     Route: 042
     Dates: start: 20040223, end: 20040223

REACTIONS (1)
  - ANAPHYLACTIC SHOCK [None]
